FAERS Safety Report 24171927 (Version 2)
Quarter: 2024Q3

REPORT INFORMATION
  Report Type: Spontaneous
  Country: US (occurrence: US)
  Receive Date: 20240805
  Receipt Date: 20240904
  Transmission Date: 20241017
  Serious: Yes (Death, Life-Threatening, Hospitalization, Other)
  Sender: AUROBINDO
  Company Number: US-AUROBINDO-AUR-APL-2024-037842

PATIENT
  Age: 33 Year
  Sex: Female

DRUGS (31)
  1. AZITHROMYCIN [Suspect]
     Active Substance: AZITHROMYCIN
     Indication: Atypical pneumonia
     Dosage: 500 MILLIGRAM, DAILY
     Route: 065
  2. DEXAMETHASONE [Suspect]
     Active Substance: DEXAMETHASONE
     Indication: Product used for unknown indication
     Dosage: 6 MILLIGRAM/KILOGRAM (FIVE DAYS)
     Route: 065
  3. METHYLPREDNISOLONE [Suspect]
     Active Substance: METHYLPREDNISOLONE
     Indication: Congenital tuberculosis
     Dosage: 125 MILLIGRAM, TWO TIMES A DAY (FOR 3 DAYS)
     Route: 042
  4. METHYLPREDNISOLONE [Suspect]
     Active Substance: METHYLPREDNISOLONE
     Indication: Pulmonary sarcoidosis
     Dosage: 100 MILLIGRAM, TWO TIMES A DAY (FOR SEVEN DAYS)
     Route: 042
  5. METHYLPREDNISOLONE [Suspect]
     Active Substance: METHYLPREDNISOLONE
     Indication: Tuberculosis gastrointestinal
  6. MEROPENEM [Suspect]
     Active Substance: MEROPENEM
     Indication: Congenital tuberculosis
     Dosage: UNK
     Route: 065
  7. MEROPENEM [Suspect]
     Active Substance: MEROPENEM
     Indication: Pulmonary sarcoidosis
  8. MEROPENEM [Suspect]
     Active Substance: MEROPENEM
     Indication: Tuberculosis gastrointestinal
  9. VANCOMYCIN [Suspect]
     Active Substance: VANCOMYCIN
     Indication: Atypical pneumonia
     Dosage: 15 MILLIGRAM/KILOGRAM, TWO TIMES A DAY
     Route: 065
  10. VANCOMYCIN [Suspect]
     Active Substance: VANCOMYCIN
     Indication: Tuberculosis gastrointestinal
  11. VANCOMYCIN [Suspect]
     Active Substance: VANCOMYCIN
     Indication: Congenital tuberculosis
  12. VANCOMYCIN [Suspect]
     Active Substance: VANCOMYCIN
     Indication: Pulmonary sarcoidosis
  13. AMIKACIN [Suspect]
     Active Substance: AMIKACIN
     Indication: Congenital tuberculosis
     Dosage: UNK
     Route: 065
  14. AMIKACIN [Suspect]
     Active Substance: AMIKACIN
     Indication: Pulmonary sarcoidosis
  15. AMIKACIN [Suspect]
     Active Substance: AMIKACIN
     Indication: Tuberculosis gastrointestinal
  16. CEFTRIAXONE [Suspect]
     Active Substance: CEFTRIAXONE\CEFTRIAXONE SODIUM
     Indication: Product used for unknown indication
     Dosage: 1 GRAM
     Route: 065
  17. ETHAMBUTOL [Suspect]
     Active Substance: ETHAMBUTOL HYDROCHLORIDE
     Indication: Congenital tuberculosis
     Dosage: UNK
     Route: 065
  18. ETHAMBUTOL [Suspect]
     Active Substance: ETHAMBUTOL HYDROCHLORIDE
     Indication: Pulmonary sarcoidosis
  19. ETHAMBUTOL [Suspect]
     Active Substance: ETHAMBUTOL HYDROCHLORIDE
     Indication: Tuberculosis gastrointestinal
  20. ISONIAZID [Suspect]
     Active Substance: ISONIAZID
     Indication: Congenital tuberculosis
     Dosage: UNK
     Route: 065
  21. ISONIAZID [Suspect]
     Active Substance: ISONIAZID
     Indication: Pulmonary sarcoidosis
  22. ISONIAZID [Suspect]
     Active Substance: ISONIAZID
     Indication: Tuberculosis gastrointestinal
  23. PYRAZINAMIDE [Suspect]
     Active Substance: PYRAZINAMIDE
     Indication: Congenital tuberculosis
     Dosage: UNK
     Route: 065
  24. PYRAZINAMIDE [Suspect]
     Active Substance: PYRAZINAMIDE
     Indication: Pulmonary sarcoidosis
  25. PYRAZINAMIDE [Suspect]
     Active Substance: PYRAZINAMIDE
     Indication: Tuberculosis gastrointestinal
  26. PYRIDOXINE [Suspect]
     Active Substance: PYRIDOXINE
     Indication: Congenital tuberculosis
     Dosage: UNK
     Route: 065
  27. PYRIDOXINE [Suspect]
     Active Substance: PYRIDOXINE
     Indication: Pulmonary sarcoidosis
  28. PYRIDOXINE [Suspect]
     Active Substance: PYRIDOXINE
     Indication: Tuberculosis gastrointestinal
  29. RIFAMPIN [Suspect]
     Active Substance: RIFAMPIN
     Indication: Congenital tuberculosis
     Dosage: UNK
     Route: 065
  30. RIFAMPIN [Suspect]
     Active Substance: RIFAMPIN
     Indication: Pulmonary sarcoidosis
  31. RIFAMPIN [Suspect]
     Active Substance: RIFAMPIN
     Indication: Tuberculosis gastrointestinal

REACTIONS (8)
  - Hydrocephalus [Fatal]
  - Disseminated tuberculosis [Fatal]
  - Cerebral infarction [Fatal]
  - Brain herniation [Fatal]
  - Granuloma [Fatal]
  - Tuberculosis [Fatal]
  - Exposure during pregnancy [Unknown]
  - Drug ineffective [Unknown]

NARRATIVE: CASE EVENT DATE: 20200101
